FAERS Safety Report 22121016 (Version 3)
Quarter: 2023Q1

REPORT INFORMATION
  Report Type: Spontaneous
  Country: US (occurrence: US)
  Receive Date: 20230321
  Receipt Date: 20230330
  Transmission Date: 20230418
  Serious: No
  Sender: FDA-Public Use
  Company Number: US-PFIZER INC-PV202300049620

PATIENT
  Age: 4 Year
  Sex: Female
  Weight: 11.34 kg

DRUGS (2)
  1. GENOTROPIN [Suspect]
     Active Substance: SOMATROPIN
     Indication: Growth hormone deficiency
     Dosage: 0.4 MG, DAILY
     Dates: start: 20230307
  2. GENOTROPIN [Suspect]
     Active Substance: SOMATROPIN
     Dosage: UNK

REACTIONS (8)
  - Poor quality device used [Unknown]
  - Drug dose omission by device [Unknown]
  - Product odour abnormal [Unknown]
  - Device breakage [Unknown]
  - Device defective [Unknown]
  - Contusion [Unknown]
  - Pain [Unknown]
  - Blood glucose abnormal [Unknown]
